FAERS Safety Report 21065694 (Version 1)
Quarter: 2022Q3

REPORT INFORMATION
  Report Type: Spontaneous
  Country: NZ (occurrence: NZ)
  Receive Date: 20220711
  Receipt Date: 20220711
  Transmission Date: 20221027
  Serious: Yes (Other)
  Sender: FDA-Public Use
  Company Number: NZ-BAXTER-2022BAX013775

PATIENT
  Age: 65 Year
  Sex: Female

DRUGS (8)
  1. CYCLOPHOSPHAMIDE [Suspect]
     Active Substance: CYCLOPHOSPHAMIDE
     Indication: Rheumatoid arthritis
     Dosage: 12.5 MG/KG, 2X A WEEK; HIGH DOSE
     Route: 065
     Dates: start: 20210326
  2. CYCLOPHOSPHAMIDE [Suspect]
     Active Substance: CYCLOPHOSPHAMIDE
     Indication: Disease recurrence
  3. PREDNISONE [Suspect]
     Active Substance: PREDNISONE
     Indication: Rheumatoid arthritis
     Dosage: WEANED PT OFF
     Route: 065
     Dates: start: 201906
  4. PREDNISONE [Suspect]
     Active Substance: PREDNISONE
     Indication: Disease recurrence
     Dosage: 40 MG, QD
     Route: 065
  5. CYCLOSPORINE [Suspect]
     Active Substance: CYCLOSPORINE
     Indication: Rheumatoid arthritis
     Dosage: DOSES RANGING FROM 3 MG/KG/DAY TO 5 MG/KG/DAY
     Route: 065
     Dates: start: 201906, end: 202102
  6. CYCLOSPORINE [Suspect]
     Active Substance: CYCLOSPORINE
     Indication: Disease recurrence
     Dosage: DOSES RANGING FROM 3 MG/KG/DAY TO 5 MG/KG/DAY
     Route: 065
     Dates: start: 20210505
  7. IMMUNE GLOBULIN NOS [Suspect]
     Active Substance: IMMUNE GLOBULIN NOS
     Indication: Rheumatoid arthritis
     Dosage: PRIOR REGIMEN FOR PYODERMA GANGENOSUM
     Route: 042
  8. IMMUNE GLOBULIN NOS [Suspect]
     Active Substance: IMMUNE GLOBULIN NOS
     Indication: Disease recurrence
     Dosage: 2 G/KG, 4X A WEEK
     Route: 042
     Dates: start: 20210226

REACTIONS (4)
  - Pyoderma gangrenosum [Unknown]
  - Condition aggravated [Unknown]
  - Skin ulcer [Unknown]
  - Drug ineffective [Unknown]
